FAERS Safety Report 9690890 (Version 5)
Quarter: 2014Q1

REPORT INFORMATION
  Report Type: Report from Study
  Country: US (occurrence: US)
  Receive Date: 20131115
  Receipt Date: 20140303
  Transmission Date: 20141002
  Serious: Yes (Disabling, Other)
  Sender: FDA-Public Use
  Company Number: US-SA-2013SA101911

PATIENT
  Age: 19 Year
  Sex: Female
  Weight: 63.5 kg

DRUGS (1)
  1. AUBAGIO [Suspect]
     Indication: MULTIPLE SCLEROSIS
     Dosage: TAKEN FROM:FOR ABOUT 2 WEEKS
     Route: 048
     Dates: start: 2013

REACTIONS (11)
  - Staphylococcal infection [Unknown]
  - Exfoliative rash [Not Recovered/Not Resolved]
  - Drug dispensing error [Unknown]
  - Multiple sclerosis [Unknown]
  - Vomiting [Recovered/Resolved]
  - Oligomenorrhoea [Unknown]
  - Nausea [Recovered/Resolved]
  - Headache [Unknown]
  - Muscle spasms [Unknown]
  - Alopecia [Unknown]
  - Blindness [Recovered/Resolved]
